FAERS Safety Report 6386147-1 (Version None)
Quarter: 2009Q4

REPORT INFORMATION
  Report Type: 
  Country: None (occurrence: None)
  Receive Date: 20091002
  Receipt Date: 20081121
  Transmission Date: 20100525
  Serious: No
  Sender: FDA-Public Use
  Company Number: US-ASTRAZENECA-2008UW26342

PATIENT
  Sex: Female

DRUGS (7)
  1. ARIMIDEX [Suspect]
     Indication: BREAST CANCER FEMALE
     Route: 048
     Dates: start: 20080701, end: 20081012
  2. ARIMIDEX [Suspect]
     Route: 048
     Dates: start: 20081022
  3. LOTREL [Concomitant]
  4. HYDROCHLOROTHIAZIDE [Concomitant]
  5. LIPITOR [Concomitant]
  6. CRESTOR [Concomitant]
  7. ASPIRIN [Concomitant]
     Dosage: 81 MG

REACTIONS (4)
  - ABNORMAL DREAMS [None]
  - ANXIETY [None]
  - COUGH [None]
  - INSOMNIA [None]
